FAERS Safety Report 8604170-0 (Version None)
Quarter: 2012Q3

REPORT INFORMATION
  Report Type: 
  Country: None (occurrence: None)
  Receive Date: 20120820
  Receipt Date: 20120807
  Transmission Date: 20120928
  Serious: Yes (Other)
  Sender: FDA-Public Use
  Company Number: SG-PAR PHARMACEUTICAL, INC-2012SCPR004563

PATIENT

DRUGS (1)
  1. IMIPRAMINE HCL [Suspect]
     Indication: DEPRESSION
     Dosage: 25 MG, TWICE DAILY
     Route: 048

REACTIONS (4)
  - FLOPPY IRIS SYNDROME [None]
  - DIABETES MELLITUS [None]
  - CATARACT [None]
  - DIABETIC RETINOPATHY [None]
